FAERS Safety Report 9365339 (Version 1)
Quarter: 2013Q2

REPORT INFORMATION
  Report Type: Spontaneous
  Country: DE (occurrence: DE)
  Receive Date: 20130625
  Receipt Date: 20130625
  Transmission Date: 20140414
  Serious: Yes (Hospitalization)
  Sender: FDA-Public Use
  Company Number: DE-009507513-1306DEU010956

PATIENT
  Age: 88 Year
  Sex: Female

DRUGS (1)
  1. FOSAMAX EINMAL W?CHENTLICH 70 MG TABLETTEN [Suspect]
     Indication: OSTEOPOROSIS
     Dosage: 70 MG, QW
     Route: 048
     Dates: start: 201301

REACTIONS (2)
  - Hyperinsulinaemia [Not Recovered/Not Resolved]
  - Hypoglycaemia [Not Recovered/Not Resolved]
